FAERS Safety Report 5331285-5 (Version None)
Quarter: 2007Q2

REPORT INFORMATION
  Report Type: 
  Country: None (occurrence: None)
  Receive Date: 20070522
  Receipt Date: 20070515
  Transmission Date: 20071010
  Serious: Yes (Hospitalization)
  Sender: FDA-Public Use
  Company Number: US-BRISTOL-MYERS SQUIBB COMPANY-13781018

PATIENT
  Age: 73 Year
  Sex: Male

DRUGS (7)
  1. TEQUIN [Suspect]
     Indication: PYREXIA
     Dates: start: 20051109, end: 20051111
  2. NEXIUM [Concomitant]
  3. MULTI-VITAMIN [Concomitant]
  4. SAW PALMETTO [Concomitant]
  5. AVODART [Concomitant]
  6. PRILOSEC [Concomitant]
  7. ADVAIR DISKUS 100/50 [Concomitant]
     Dosage: 250/50 STRENGTH

REACTIONS (2)
  - DIABETES MELLITUS [None]
  - HYPERGLYCAEMIA [None]
